FAERS Safety Report 6735611-1 (Version None)
Quarter: 2010Q2

REPORT INFORMATION
  Report Type: 
  Country: None (occurrence: None)
  Receive Date: 20100521
  Receipt Date: 20100512
  Transmission Date: 20101027
  Serious: Yes (Other)
  Sender: FDA-Public Use
  Company Number: JP-AMGEN-US322320

PATIENT
  Sex: Female

DRUGS (6)
  1. ENBREL [Suspect]
     Indication: RHEUMATOID ARTHRITIS
     Dosage: UNSPECIFIED
     Route: 058
     Dates: start: 20071201
  2. PREDONINE [Concomitant]
     Dosage: UNSPECIFIED
     Route: 048
     Dates: start: 20071201
  3. ISONIAZID [Concomitant]
     Dosage: UNSPECIFIED
     Route: 048
     Dates: start: 20071201
  4. PYDOXAL [Concomitant]
     Dosage: UNSPECIFIED
     Route: 048
  5. BREDININ [Concomitant]
     Dosage: UNSPECIFIED
     Route: 048
     Dates: start: 20071201
  6. FAMOTIDINE [Concomitant]
     Dosage: UNSPECIFIED
     Route: 048

REACTIONS (1)
  - POROCARCINOMA [None]
